FAERS Safety Report 6814669-5 (Version None)
Quarter: 2010Q3

REPORT INFORMATION
  Report Type: 
  Country: None (occurrence: None)
  Receive Date: 20100702
  Receipt Date: 20100623
  Transmission Date: 20110219
  Serious: Yes (Other)
  Sender: FDA-Public Use
  Company Number: FR-PERRIGO-10FR010714

PATIENT
  Age: 71 Year
  Sex: Female

DRUGS (6)
  1. ACETAMINOPHEN SLOW RELEASE [Suspect]
     Indication: HYPERTHERMIA
     Dosage: UNKNOWN
     Route: 042
  2. ACETAMINOPHEN SLOW RELEASE [Suspect]
     Dosage: ONE GRAM VIA NASOGASTRIC TUBE
     Route: 050
  3. MIDAZOLAM HCL [Concomitant]
     Indication: SEDATION
     Dosage: UNK
     Route: 042
  4. SUFENTANIL [Concomitant]
     Indication: SEDATION
     Dosage: UNK
     Route: 042
  5. PIPERACILLIN W/TAZOBACTAM [Concomitant]
     Indication: LUNG DISORDER
     Dosage: UNK
     Route: 042
  6. AMIKACIN [Concomitant]
     Indication: LUNG DISORDER
     Dosage: UNK
     Route: 042

REACTIONS (1)
  - HYPOTENSION [None]
